FAERS Safety Report 4899696-X (Version None)
Quarter: 2006Q1

REPORT INFORMATION
  Report Type: 
  Country: None (occurrence: None)
  Receive Date: 20060202
  Receipt Date: 20041027
  Transmission Date: 20060701
  Serious: Yes (Hospitalization, Disabling, Other)
  Sender: FDA-Public Use
  Company Number: DE-MERCK-0410DEU00764

PATIENT
  Age: 42 Year
  Sex: Male
  Weight: 120 kg

DRUGS (1)
  1. VIOXX [Suspect]
     Indication: PAIN
     Route: 048
     Dates: start: 20010404, end: 20040301

REACTIONS (3)
  - CORONARY ARTERY RESTENOSIS [None]
  - HYPERTENSION [None]
  - MYOCARDIAL INFARCTION [None]
